FAERS Safety Report 5248542-3 (Version None)
Quarter: 2007Q1

REPORT INFORMATION
  Report Type: 
  Country: None (occurrence: None)
  Receive Date: 20070222
  Receipt Date: 20070219
  Transmission Date: 20070707
  Serious: Yes (Death)
  Sender: FDA-Public Use
  Company Number: 2006S1000101

PATIENT
  Age: 2 Day
  Sex: Female

DRUGS (10)
  1. NITRIC OXIDE [Suspect]
     Indication: LUNG DISORDER
     Dosage: 5 PPM; CONT INH
     Route: 055
     Dates: start: 20060514, end: 20060516
  2. NITRIC OXIDE [Suspect]
     Indication: PROPHYLAXIS
     Dosage: 5 PPM; CONT INH
     Route: 055
     Dates: start: 20060514, end: 20060516
  3. PENICILLIN [Concomitant]
  4. GENTAMICIN [Concomitant]
  5. VANCOMYCIN [Concomitant]
  6. ACETAMINOPHEN [Concomitant]
  7. MORPHINE [Concomitant]
  8. HYDROCORTISONE [Concomitant]
  9. DOPAMINE HCL [Concomitant]
  10. INOMAX [Concomitant]

REACTIONS (8)
  - EMPHYSEMA [None]
  - HAEMATOCRIT DECREASED [None]
  - INTRAVENTRICULAR HAEMORRHAGE NEONATAL [None]
  - NEONATAL DISORDER [None]
  - NEONATAL RESPIRATORY ACIDOSIS [None]
  - NEONATAL RESPIRATORY FAILURE [None]
  - PULMONARY HYPERTENSION [None]
  - PULMONARY INTERSTITIAL EMPHYSEMA SYNDROME [None]
